FAERS Safety Report 23811745 (Version 1)
Quarter: 2024Q2

REPORT INFORMATION
  Report Type: Spontaneous
  Country: US (occurrence: US)
  Receive Date: 20240503
  Receipt Date: 20240503
  Transmission Date: 20240716
  Serious: No
  Sender: FDA-Public Use
  Company Number: US-UCBSA-2023025326

PATIENT
  Sex: Female
  Weight: 126.98 kg

DRUGS (1)
  1. CIMZIA [Suspect]
     Active Substance: CERTOLIZUMAB PEGOL
     Indication: Rheumatoid arthritis
     Dosage: 200 MILLIGRAM, EV 2 WEEKS(QOW) IN THE ABDOMEN OR THIGH
     Route: 058
     Dates: start: 202302

REACTIONS (3)
  - Pruritus [Unknown]
  - Irritability [Unknown]
  - Food poisoning [Unknown]
